FAERS Safety Report 18293291 (Version 1)
Quarter: 2020Q3

REPORT INFORMATION
  Report Type: Spontaneous
  Country: US (occurrence: US)
  Receive Date: 20200921
  Receipt Date: 20200921
  Transmission Date: 20201103
  Serious: Yes (Other)
  Sender: FDA-Public Use
  Company Number: None

PATIENT
  Age: 66 Year
  Sex: Female

DRUGS (1)
  1. SUCRALFATE 1GM TABLET [Suspect]
     Active Substance: SUCRALFATE
     Indication: PROPHYLAXIS
     Route: 048
     Dates: start: 20200915, end: 20200918

REACTIONS (3)
  - Choking [None]
  - Cough [None]
  - Product physical issue [None]

NARRATIVE: CASE EVENT DATE: 20200918
